FAERS Safety Report 8267041-8 (Version None)
Quarter: 2012Q2

REPORT INFORMATION
  Report Type: 
  Country: None (occurrence: None)
  Receive Date: 20120409
  Receipt Date: 20120404
  Transmission Date: 20120825
  Serious: No
  Sender: FDA-Public Use
  Company Number: US-PFIZER INC-2012085894

PATIENT
  Sex: Male
  Weight: 72.562 kg

DRUGS (1)
  1. DEPO-TESTOSTERONE [Suspect]
     Indication: HORMONE THERAPY
     Dosage: 100 MG/ML, EVERY FORTNIGHTLY
     Route: 030

REACTIONS (2)
  - CIRCUMSTANCE OR INFORMATION CAPABLE OF LEADING TO MEDICATION ERROR [None]
  - PAIN [None]
